FAERS Safety Report 16223233 (Version 1)
Quarter: 2019Q2

REPORT INFORMATION
  Report Type: Spontaneous
  Country: US (occurrence: US)
  Receive Date: 20190422
  Receipt Date: 20190422
  Transmission Date: 20190711
  Serious: No
  Sender: FDA-Public Use
  Company Number: US-PFIZER INC-2019165031

PATIENT
  Age: 51 Year

DRUGS (3)
  1. AMOXICILLIN AND CLAVUNATE POTASSIUM [Suspect]
     Active Substance: AMOXICILLIN\CLAVULANATE POTASSIUM
     Dosage: UNK
  2. BUTORPHANOL TARTRATE. [Suspect]
     Active Substance: BUTORPHANOL TARTRATE
     Dosage: UNK
  3. PENICILLIN-V [PHENOXYMETHYLPENICILLIN] [Suspect]
     Active Substance: PENICILLIN V
     Dosage: UNK

REACTIONS (1)
  - Drug hypersensitivity [Unknown]
